FAERS Safety Report 8043412-X (Version None)
Quarter: 2012Q1

REPORT INFORMATION
  Report Type: 
  Country: None (occurrence: None)
  Receive Date: 20120112
  Receipt Date: 20120105
  Transmission Date: 20120608
  Serious: Yes (Death, Life-Threatening, Hospitalization, Other)
  Sender: FDA-Public Use
  Company Number: PHHY2011JP84121

PATIENT
  Sex: Male
  Weight: 64 kg

DRUGS (11)
  1. MICARDIS [Concomitant]
     Indication: HYPERTENSION
     Dosage: 40 MG, UNK
     Dates: start: 20110516
  2. LIPITOR [Concomitant]
     Indication: HYPERLIPIDAEMIA
     Dosage: 5 MG, UNK
     Route: 048
     Dates: start: 20110516
  3. AMARYL [Concomitant]
     Indication: DIABETES MELLITUS
     Dosage: 1 MG, UNK
     Route: 048
     Dates: start: 20110516
  4. DOCETAXEL [Suspect]
     Dosage: UNK UKN, UNK
     Dates: start: 20110501
  5. TRAMADOL HYDROCHLORIDE [Concomitant]
     Indication: PAIN
     Dosage: 75 MG, UNK
     Route: 048
     Dates: start: 20101206, end: 20110520
  6. TAXOTERE [Concomitant]
     Indication: PROSTATE CANCER
     Dosage: UNK UKN, UNK
     Route: 041
     Dates: start: 20110510
  7. LEUPROLIDE ACETATE [Concomitant]
     Indication: PROSTATE CANCER
     Dosage: UNK UKN, UNK
     Route: 058
     Dates: start: 20090901
  8. ADALAT [Concomitant]
     Indication: HYPERTENSION
     Dosage: 10 MG, UNK
     Route: 048
     Dates: start: 20110516
  9. ZOMETA [Suspect]
     Indication: METASTASES TO BONE
     Dosage: 4 MG, UNK
     Route: 041
     Dates: start: 20100726
  10. ZOMETA [Suspect]
     Dosage: 4 MG, UNK
     Route: 041
     Dates: end: 20110519
  11. DECADRON [Concomitant]
     Indication: PROSTATE CANCER
     Dosage: 1 MG, UNK
     Route: 048
     Dates: start: 20101108, end: 20110627

REACTIONS (15)
  - PHARYNGEAL ABSCESS [None]
  - METASTASES TO LIVER [None]
  - DYSPNOEA [None]
  - HAEMOGLOBIN DECREASED [None]
  - CELLULITIS PHARYNGEAL [None]
  - MEDIASTINITIS [None]
  - SWELLING [None]
  - RENAL FAILURE ACUTE [None]
  - PANCYTOPENIA [None]
  - BRONCHOSTENOSIS [None]
  - HEPATIC FAILURE [None]
  - HEPATIC ENZYME INCREASED [None]
  - OSTEONECROSIS OF JAW [None]
  - EXPOSED BONE IN JAW [None]
  - PAIN IN JAW [None]
